FAERS Safety Report 6498198-7 (Version None)
Quarter: 2009Q4

REPORT INFORMATION
  Report Type: 
  Country: None (occurrence: None)
  Receive Date: 20091215
  Receipt Date: 20091208
  Transmission Date: 20100525
  Serious: Yes (Other)
  Sender: FDA-Public Use
  Company Number: A0824268A

PATIENT
  Age: 29 Year
  Sex: Male
  Weight: 90 kg

DRUGS (2)
  1. PAXIL CR [Suspect]
     Indication: INSOMNIA
     Dosage: 12.5U PER DAY
  2. AMBIEN [Concomitant]

REACTIONS (3)
  - ADVERSE DRUG REACTION [None]
  - IMPRISONMENT [None]
  - SEXUAL ABUSE [None]
